FAERS Safety Report 4895638-1 (Version None)
Quarter: 2006Q1

REPORT INFORMATION
  Report Type: 
  Country: None (occurrence: None)
  Receive Date: 20060125
  Receipt Date: 20060113
  Transmission Date: 20060701
  Serious: Yes (Hospitalization, Other)
  Sender: FDA-Public Use
  Company Number: KII-2006-0020706

PATIENT
  Age: 55 Year
  Sex: Male

DRUGS (2)
  1. OXYCODONE HCL [Suspect]
  2. CARBON MONOXIDE () [Suspect]
     Dosage: INHALATION
     Route: 055

REACTIONS (6)
  - BLOOD CARBON MONOXIDE INCREASED [None]
  - DEPRESSED LEVEL OF CONSCIOUSNESS [None]
  - INTENTIONAL DRUG MISUSE [None]
  - MULTIPLE DRUG OVERDOSE INTENTIONAL [None]
  - SOMNOLENCE [None]
  - SUICIDE ATTEMPT [None]
